FAERS Safety Report 25307118 (Version 1)
Quarter: 2025Q2

REPORT INFORMATION
  Report Type: Spontaneous
  Country: US (occurrence: US)
  Receive Date: 20250513
  Receipt Date: 20250513
  Transmission Date: 20250717
  Serious: No
  Sender: ELI LILLY AND COMPANY
  Company Number: US-ELI_LILLY_AND_COMPANY-US202505009133

PATIENT
  Age: 63 Year
  Sex: Female

DRUGS (1)
  1. MOUNJARO [Suspect]
     Active Substance: TIRZEPATIDE
     Indication: Product used for unknown indication
     Route: 065
     Dates: start: 20241201

REACTIONS (5)
  - Insomnia [Unknown]
  - Arthralgia [Unknown]
  - Overdose [Unknown]
  - Dyspepsia [Unknown]
  - Fatigue [Unknown]

NARRATIVE: CASE EVENT DATE: 20250511
